FAERS Safety Report 5148381-8 (Version None)
Quarter: 2006Q4

REPORT INFORMATION
  Report Type: 
  Country: None (occurrence: None)
  Receive Date: 20061110
  Receipt Date: 20061103
  Transmission Date: 20070319
  Serious: Yes (Hospitalization, Other)
  Sender: FDA-Public Use
  Company Number: US-ALLERGAN-0607077US

PATIENT
  Age: 37 Year
  Sex: Female

DRUGS (3)
  1. BOTOX [Suspect]
     Indication: TORTICOLLIS
     Dosage: 4 UNITS, SINGLE
     Route: 030
     Dates: start: 20061010, end: 20061010
  2. BOTOX [Suspect]
     Dosage: 450 UNITS, SINGLE
     Route: 030
     Dates: start: 20061018, end: 20061018
  3. ELAVIL                             /00002202/ [Concomitant]

REACTIONS (4)
  - DYSPHAGIA [None]
  - HEART RATE INCREASED [None]
  - INFLUENZA LIKE ILLNESS [None]
  - OXYGEN SATURATION DECREASED [None]
